FAERS Safety Report 17510233 (Version 1)
Quarter: 2020Q1

REPORT INFORMATION
  Report Type: Spontaneous
  Country: US (occurrence: US)
  Receive Date: 20200306
  Receipt Date: 20200306
  Transmission Date: 20200409
  Serious: No
  Sender: FDA-Public Use
  Company Number: US-PFIZER INC-2020099821

PATIENT
  Age: 22 Year
  Sex: Male
  Weight: 127.1 kg

DRUGS (1)
  1. VIAGRA [Suspect]
     Active Substance: SILDENAFIL CITRATE
     Dosage: UNK
     Dates: start: 20200128, end: 20200128

REACTIONS (4)
  - Abdominal pain upper [Recovering/Resolving]
  - Pharyngeal swelling [Not Recovered/Not Resolved]
  - Throat irritation [Not Recovered/Not Resolved]
  - Discoloured vomit [Recovered/Resolved with Sequelae]

NARRATIVE: CASE EVENT DATE: 20200128
